FAERS Safety Report 7929218-8 (Version None)
Quarter: 2011Q4

REPORT INFORMATION
  Report Type: 
  Country: None (occurrence: None)
  Receive Date: 20111121
  Receipt Date: 20111111
  Transmission Date: 20120403
  Serious: Yes (Other)
  Sender: FDA-Public Use
  Company Number: SE-BRISTOL-MYERS SQUIBB COMPANY-16227696

PATIENT
  Age: 56 Year
  Sex: Male

DRUGS (7)
  1. ONDANSETRON [Suspect]
     Indication: PREMEDICATION
     Dosage: DOSE:8MG.RESTARTED:SEP2011.
     Route: 042
     Dates: start: 20110901
  2. RANITIDINE [Concomitant]
     Indication: PREMEDICATION
     Route: 042
  3. FLUOROURACIL [Suspect]
     Indication: SQUAMOUS CELL CARCINOMA
     Dates: start: 20110906, end: 20110909
  4. CLEMASTINE FUMARATE [Concomitant]
     Indication: PREMEDICATION
     Route: 042
  5. BETAPRED [Concomitant]
     Indication: PREMEDICATION
     Route: 042
  6. CISPLATIN [Concomitant]
     Indication: SQUAMOUS CELL CARCINOMA
     Dates: start: 20110905
  7. ERBITUX [Suspect]
     Indication: SQUAMOUS CELL CARCINOMA
     Dates: start: 20110905

REACTIONS (2)
  - HEPATIC ENZYME INCREASED [None]
  - ATRIAL FIBRILLATION [None]
